FAERS Safety Report 9574773 (Version 2)
Quarter: 2014Q2

REPORT INFORMATION
  Report Type: Spontaneous
  Country: JP (occurrence: JP)
  Receive Date: 20131001
  Receipt Date: 20140403
  Transmission Date: 20141212
  Serious: Yes (Hospitalization, Other)
  Sender: FDA-Public Use
  Company Number: JP-JNJFOC-20130916322

PATIENT
  Age: 68 Year
  Sex: Female

DRUGS (7)
  1. TRAMCET [Suspect]
     Indication: PAIN
     Dosage: 1 DOSE 1 PER DAY
     Route: 048
     Dates: start: 20130907, end: 20130908
  2. MICOMBI [Concomitant]
     Indication: HYPERTENSION
     Route: 048
  3. AMLODIN [Concomitant]
     Indication: HYPERTENSION
     Route: 048
  4. CIMETIDINE [Concomitant]
     Route: 065
  5. ATORVASTATIN [Concomitant]
     Route: 048
  6. PRORENAL [Concomitant]
     Route: 048
  7. BUFFERIN [Concomitant]
     Route: 048

REACTIONS (5)
  - Loss of consciousness [Recovered/Resolved]
  - Blood pressure increased [Unknown]
  - Vomiting [Recovered/Resolved]
  - Feeling abnormal [Recovered/Resolved]
  - Dizziness [Recovered/Resolved]
